FAERS Safety Report 5085225-7 (Version None)
Quarter: 2006Q3

REPORT INFORMATION
  Report Type: 
  Country: None (occurrence: None)
  Receive Date: 20060822
  Receipt Date: 20060222
  Transmission Date: 20061208
  Serious: Yes (Hospitalization)
  Sender: FDA-Public Use
  Company Number: FR-BAYER-200610194BFR

PATIENT
  Age: 45 Year
  Sex: Male
  Weight: 70 kg

DRUGS (5)
  1. CIFLOX [Suspect]
     Indication: OSTEITIS
     Dosage: UNIT DOSE: 1500 MG
     Route: 048
     Dates: start: 20060107, end: 20060128
  2. TAZOCILLINE [Suspect]
     Indication: OSTEITIS
     Dosage: UNIT DOSE: 12 G
     Route: 042
     Dates: start: 20060107, end: 20060128
  3. PLAVIX [Suspect]
     Indication: UNEVALUABLE EVENT
     Route: 048
     Dates: start: 20051230, end: 20060120
  4. CHRONADALATE LP [Suspect]
     Indication: RAYNAUD'S PHENOMENON
     Dates: start: 20010101
  5. ASPIRIN [Concomitant]
     Indication: UNEVALUABLE EVENT
     Route: 048
     Dates: end: 20051230

REACTIONS (1)
  - THROMBOTIC THROMBOCYTOPENIC PURPURA [None]
